FAERS Safety Report 7656622-8 (Version None)
Quarter: 2011Q3

REPORT INFORMATION
  Report Type: 
  Country: None (occurrence: None)
  Receive Date: 20110804
  Receipt Date: 20110802
  Transmission Date: 20111222
  Serious: No
  Sender: FDA-Public Use
  Company Number: US-TEVA-294601USA

PATIENT
  Sex: Female
  Weight: 109.87 kg

DRUGS (1)
  1. PROAIR HFA [Suspect]
     Indication: ASTHMA
     Dosage: EVERY 4-6 HRS. PRN
     Route: 055
     Dates: start: 20080101

REACTIONS (1)
  - DRUG INEFFECTIVE [None]
